FAERS Safety Report 10486017 (Version 1)
Quarter: 2014Q3

REPORT INFORMATION
  Report Type: Spontaneous
  Country: US (occurrence: None)
  Receive Date: 20140930
  Receipt Date: 20140930
  Transmission Date: 20150326
  Serious: Yes (Disabling)
  Sender: FDA-Public Use
  Company Number: None

PATIENT
  Age: 20 Year
  Sex: Male
  Weight: 88.45 kg

DRUGS (1)
  1. PROPECIA [Suspect]
     Active Substance: FINASTERIDE
     Indication: ALOPECIA
     Dosage: 1 PILL
     Route: 048
     Dates: start: 20131201, end: 20131231

REACTIONS (3)
  - Libido disorder [None]
  - Stress [None]
  - Quality of life decreased [None]

NARRATIVE: CASE EVENT DATE: 20131231
